FAERS Safety Report 5275212-8 (Version None)
Quarter: 2007Q1

REPORT INFORMATION
  Report Type: 
  Country: None (occurrence: None)
  Receive Date: 20061214
  Receipt Date: 20060921
  Transmission Date: 20070707
  Serious: Yes (Other)
  Sender: FDA-Public Use
  Company Number: 2006117174

PATIENT
  Sex: Female

DRUGS (1)
  1. MEDROL [Suspect]
     Indication: ARTHRITIS
     Dosage: 4 MG (4 MG,1 IN 1 D)

REACTIONS (3)
  - MUSCLE ATROPHY [None]
  - SKIN DISCOLOURATION [None]
  - UNEVALUABLE EVENT [None]
